FAERS Safety Report 25545228 (Version 1)
Quarter: 2025Q3

REPORT INFORMATION
  Report Type: Spontaneous
  Country: US (occurrence: US)
  Receive Date: 20250711
  Receipt Date: 20250711
  Transmission Date: 20251020
  Serious: No
  Sender: BIOMARIN
  Company Number: US-BIOMARINAP-US-2025-166948

PATIENT
  Age: 12 Year
  Sex: Female

DRUGS (3)
  1. VIMIZIM [Suspect]
     Active Substance: ELOSULFASE ALFA
     Indication: Mucopolysaccharidosis IV
     Dosage: 45 MILLIGRAM, QW
     Dates: start: 202410
  2. TYLENOL [Concomitant]
     Active Substance: ACETAMINOPHEN
     Indication: Premedication
  3. BENADRYL [Concomitant]
     Active Substance: DIPHENHYDRAMINE HYDROCHLORIDE
     Indication: Premedication

REACTIONS (3)
  - Heart rate increased [Not Recovered/Not Resolved]
  - Pain [Unknown]
  - Pyrexia [Recovered/Resolved]

NARRATIVE: CASE EVENT DATE: 20250601
